FAERS Safety Report 7553673-9 (Version None)
Quarter: 2011Q2

REPORT INFORMATION
  Report Type: 
  Country: None (occurrence: None)
  Receive Date: 20110614
  Receipt Date: 20110614
  Transmission Date: 20111010
  Serious: Yes (Disabling)
  Sender: FDA-Public Use
  Company Number: None

PATIENT
  Sex: Male
  Weight: 70.3075 kg

DRUGS (1)
  1. SIMVASTATIN [Suspect]
     Indication: BLOOD CHOLESTEROL INCREASED
     Dosage: 80MG ONE, DAILY PO
     Route: 048
     Dates: start: 20100101, end: 20110615

REACTIONS (2)
  - MUSCLE RUPTURE [None]
  - DECREASED ACTIVITY [None]
